FAERS Safety Report 8408048-7 (Version None)
Quarter: 2012Q2

REPORT INFORMATION
  Report Type: 
  Country: None (occurrence: None)
  Receive Date: 20120604
  Receipt Date: 20120529
  Transmission Date: 20120825
  Serious: Yes (Other)
  Sender: FDA-Public Use
  Company Number: GB-MERCK-1206USA00060

PATIENT
  Age: 61 Year
  Sex: Female

DRUGS (12)
  1. JANUVIA [Suspect]
     Route: 048
     Dates: start: 20120416
  2. OMEPRAZOLE [Concomitant]
     Route: 065
  3. GLIPIZIDE [Concomitant]
     Route: 065
  4. FLUOXETINE [Concomitant]
     Route: 065
  5. SIMVASTATIN [Concomitant]
     Route: 048
  6. METFORMIN [Concomitant]
     Route: 048
  7. LOPERMIDE [Concomitant]
     Route: 065
  8. QUININE SULFATE [Concomitant]
     Route: 065
  9. QVAR 40 [Concomitant]
     Route: 055
  10. BEZAFIBRATE [Concomitant]
     Route: 048
  11. LISINOPRIL [Concomitant]
     Dosage: 10-12.5
     Route: 048
  12. METOPROLOL [Concomitant]
     Route: 048

REACTIONS (2)
  - GRAND MAL CONVULSION [None]
  - BLOOD GLUCOSE ABNORMAL [None]
